FAERS Safety Report 25889394 (Version 2)
Quarter: 2025Q4

REPORT INFORMATION
  Report Type: Spontaneous
  Country: US (occurrence: US)
  Receive Date: 20251007
  Receipt Date: 20251110
  Transmission Date: 20260118
  Serious: Yes (Other)
  Sender: SUNOVION
  Company Number: US-SUMITOMO PHARMA SWITZERLAND GMBH-2025SPA012848

PATIENT
  Age: 72 Year
  Sex: Female
  Weight: 54.422 kg

DRUGS (6)
  1. GEMTESA [Suspect]
     Active Substance: VIBEGRON
     Indication: Urinary incontinence
     Dosage: 75 MILLIGRAM
     Route: 048
  2. TERBINAFINE [Concomitant]
     Active Substance: TERBINAFINE
     Indication: Fungal infection
     Dosage: UNK..BEEN TAKING IT FOR 30 DAYS; STARTING 2ND BOTTLE
  3. ADVAIR HFA [Concomitant]
     Active Substance: FLUTICASONE PROPIONATE\SALMETEROL XINAFOATE
     Indication: Asthma
     Dosage: 250 MILLIGRAM, PRN (TAKEN AS NEEDED)
  4. SINGULAIR [Concomitant]
     Active Substance: MONTELUKAST SODIUM
     Indication: Asthma
     Dosage: 10 MILLIGRAM, PRN (TAKEN AS NEEDED)
  5. ALBUTEROL [Concomitant]
     Active Substance: ALBUTEROL
     Indication: Asthma
     Dosage: INHALER; PRN (TAKEN AS NEEDED); IN CASE ADVAIR DOESN^T WORK RIGHT
  6. IVERMECTIN [Concomitant]
     Active Substance: IVERMECTIN
     Dosage: TAKEN ONCE A MONTH

REACTIONS (8)
  - Blindness transient [Recovered/Resolved]
  - Vision blurred [Recovered/Resolved]
  - Gait disturbance [Unknown]
  - Feeling drunk [Unknown]
  - Dizziness [Unknown]
  - Nausea [Unknown]
  - Headache [Unknown]
  - Wrong technique in product usage process [Unknown]
